FAERS Safety Report 5699688-7 (Version None)
Quarter: 2008Q2

REPORT INFORMATION
  Report Type: 
  Country: None (occurrence: None)
  Receive Date: 20080410
  Receipt Date: 20080331
  Transmission Date: 20081010
  Serious: Yes (Hospitalization)
  Sender: FDA-Public Use
  Company Number: PHEH2008US02600

PATIENT
  Age: 61 Year
  Sex: Female
  Weight: 51.7 kg

DRUGS (6)
  1. RECLAST [Suspect]
     Indication: OSTEOPOROSIS
     Dosage: 5 MG, ONCE/SINGLE
     Dates: start: 20080228
  2. PROZAC [Concomitant]
     Dosage: 20 MG, QD
     Route: 048
  3. LORAZEPAM [Concomitant]
     Dosage: 1 MG, QD
     Route: 048
  4. PROLIXIN [Concomitant]
     Dosage: 1 MG, QD
     Route: 048
  5. GABAPENTIN [Concomitant]
     Dosage: 200 MG, BID
     Route: 048
  6. DIAZEPAM [Concomitant]
     Dosage: 5 MG, QD
     Route: 048

REACTIONS (7)
  - ABASIA [None]
  - ARTHRALGIA [None]
  - BACK PAIN [None]
  - JOINT SWELLING [None]
  - MUSCULAR WEAKNESS [None]
  - OEDEMA PERIPHERAL [None]
  - PAIN IN EXTREMITY [None]
